FAERS Safety Report 5264010-7 (Version None)
Quarter: 2007Q1

REPORT INFORMATION
  Report Type: 
  Country: None (occurrence: None)
  Receive Date: 20070313
  Receipt Date: 20070307
  Transmission Date: 20070707
  Serious: Yes (Other)
  Sender: FDA-Public Use
  Company Number: US-PFIZER INC-2007017661

PATIENT
  Sex: Male
  Weight: 90.7 kg

DRUGS (4)
  1. ZYRTEC [Suspect]
     Dates: start: 20061001, end: 20061101
  2. DIOVANE [Concomitant]
  3. RHINOCORT [Concomitant]
  4. FUROSEMIDE [Concomitant]

REACTIONS (1)
  - LOSS OF CONSCIOUSNESS [None]
